FAERS Safety Report 9748879 (Version 2)
Quarter: 2014Q1

REPORT INFORMATION
  Report Type: Spontaneous
  Country: US (occurrence: US)
  Receive Date: 20131212
  Receipt Date: 20140312
  Transmission Date: 20141002
  Serious: No
  Sender: FDA-Public Use
  Company Number: US-INCYTE CORPORATION-2013IN002053

PATIENT
  Age: 55 Year
  Sex: Female

DRUGS (8)
  1. JAKAFI [Suspect]
     Indication: MYELOFIBROSIS
     Dosage: 15 MG, BID
     Route: 048
     Dates: start: 201308
  2. FLUOXETINE [Concomitant]
  3. ZOFRAN                             /00955301/ [Concomitant]
  4. HYDROMORPHONE [Concomitant]
  5. LISINOPRIL + HIDROCLOROTIAZIDA [Concomitant]
  6. IRON [Concomitant]
  7. ASPIRIN [Concomitant]
  8. PANTOPRAZOLE [Concomitant]

REACTIONS (3)
  - Paraesthesia [Not Recovered/Not Resolved]
  - Hypoaesthesia [Not Recovered/Not Resolved]
  - Musculoskeletal stiffness [Unknown]
